FAERS Safety Report 17973765 (Version 3)
Quarter: 2020Q3

REPORT INFORMATION
  Report Type: Spontaneous
  Country: US (occurrence: US)
  Receive Date: 20200702
  Receipt Date: 20200820
  Transmission Date: 20201103
  Serious: Yes (Death, Other)
  Sender: FDA-Public Use
  Company Number: US-009507513-2006USA010340

PATIENT
  Sex: Male

DRUGS (11)
  1. METFORMIN HYDROCHLORIDE. [Concomitant]
     Active Substance: METFORMIN HYDROCHLORIDE
     Indication: TYPE 2 DIABETES MELLITUS
     Dosage: 500 MILLIGRAM, 1 TABLET WITH A MEAL TWICE A DAY
     Route: 048
     Dates: start: 20180705, end: 20180809
  2. GAVILYTE N [Concomitant]
     Indication: BOWEL PREPARATION
     Dosage: UNK
     Dates: start: 20171011
  3. JANUMET [Suspect]
     Active Substance: METFORMIN HYDROCHLORIDE\SITAGLIPTIN PHOSPHATE
     Indication: TYPE 2 DIABETES MELLITUS
     Dosage: TAKE 1 TABLET BY MOUTH TWICE A DAY.
     Route: 048
     Dates: start: 20151109, end: 20180822
  4. PRINIVIL [Concomitant]
     Active Substance: LISINOPRIL
     Indication: HYPERTENSION
     Dosage: 5 MILLIGRAM, QD, TAKE 1 TABLET ONCE DAILY
     Route: 048
     Dates: start: 20180123, end: 20180809
  5. LOVASTATIN. [Concomitant]
     Active Substance: LOVASTATIN
     Indication: BLOOD CHOLESTEROL INCREASED
     Dosage: 20 MILLIGRAM, QPM, TAKE 1 TABLET EVERY NIGHT
     Route: 048
     Dates: start: 20171228, end: 20190809
  6. POLYETHYLENE GLYCOL [Concomitant]
     Active Substance: POLYETHYLENE GLYCOLS
     Indication: LAXATIVE SUPPORTIVE CARE
     Dosage: 1 SCOOP DISSOLVE IN 1 GLASS OF WATER ONCE A DAY, QD
     Route: 048
     Dates: start: 20180612
  7. METOCLOPRAMIDE. [Concomitant]
     Active Substance: METOCLOPRAMIDE
     Indication: ANTIEMETIC SUPPORTIVE CARE
     Dosage: UNK
     Dates: start: 20180617, end: 20180701
  8. METOCLOPRAMIDE. [Concomitant]
     Active Substance: METOCLOPRAMIDE
     Indication: PROPHYLAXIS
  9. LEVEMIR [Concomitant]
     Active Substance: INSULIN DETEMIR
     Indication: BLOOD INSULIN
     Dosage: 15 UNITS ONCE DAILY; STRENGTH: 100 UNIT/ML
     Route: 058
     Dates: start: 20180406, end: 20180720
  10. PROPOFOL. [Concomitant]
     Active Substance: PROPOFOL
     Dosage: 600 MILLIGRAM
     Route: 042
     Dates: start: 20180705
  11. LOVASTATIN. [Concomitant]
     Active Substance: LOVASTATIN
     Indication: TYPE V HYPERLIPIDAEMIA

REACTIONS (14)
  - Hepatic cancer [Unknown]
  - Muscular weakness [Unknown]
  - Constipation [Unknown]
  - Death [Fatal]
  - Anxiety [Unknown]
  - Palpitations [Unknown]
  - Depressive symptom [Unknown]
  - Cystadenocarcinoma pancreas [Unknown]
  - Oedema peripheral [Unknown]
  - Emotional distress [Unknown]
  - Large intestine polyp [Unknown]
  - Arthralgia [Unknown]
  - Hypersensitivity [Unknown]
  - Myalgia [Unknown]

NARRATIVE: CASE EVENT DATE: 20180625
